FAERS Safety Report 6305609-6 (Version None)
Quarter: 2009Q3

REPORT INFORMATION
  Report Type: 
  Country: None (occurrence: None)
  Receive Date: 20090806
  Receipt Date: 20090723
  Transmission Date: 20100115
  Serious: Yes (Death, Hospitalization)
  Sender: FDA-Public Use
  Company Number: 2009AL005003

PATIENT
  Age: 54 Year
  Sex: Female

DRUGS (2)
  1. EPIRUBICIN HCL [Suspect]
     Indication: COLON CANCER
     Dosage: 60 MG/M**2; IVBOL
     Route: 040
     Dates: start: 20050810, end: 20051013
  2. DECITABINE [Concomitant]

REACTIONS (9)
  - AGITATION [None]
  - COLON CANCER [None]
  - CONDITION AGGRAVATED [None]
  - DIZZINESS [None]
  - GENERAL PHYSICAL HEALTH DETERIORATION [None]
  - HYPOKALAEMIA [None]
  - LOWER RESPIRATORY TRACT INFECTION [None]
  - NEUTROPENIC SEPSIS [None]
  - RESPIRATORY FAILURE [None]
